FAERS Safety Report 8133057-5 (Version None)
Quarter: 2012Q1

REPORT INFORMATION
  Report Type: 
  Country: None (occurrence: None)
  Receive Date: 20120103
  Receipt Date: 20110830
  Transmission Date: 20120608
  Serious: No
  Sender: FDA-Public Use
  Company Number: AE-2011-001135

PATIENT

DRUGS (14)
  1. PEGINTERFERON ALFA-2A [Concomitant]
  2. RIBAVIRIN [Concomitant]
  3. INCIVEK [Suspect]
     Dosage: 2250 MG (750 MG,1 IN 8 HR)
  4. LISINOPRIL [Concomitant]
  5. LOPERAMIDE [Concomitant]
  6. GABAPENTIN [Concomitant]
  7. OMEPRAZOLE [Concomitant]
  8. LORATADINE [Concomitant]
  9. OXYCODONE HCL [Concomitant]
  10. METHADONE HCL [Concomitant]
  11. HYDROCHLOROTHIAZIDE [Concomitant]
  12. ETODOLAC [Concomitant]
  13. BACLOFEN [Concomitant]
  14. ZOLPIDEM [Concomitant]

REACTIONS (2)
  - ORAL DISCOMFORT [None]
  - APHAGIA [None]
